FAERS Safety Report 16693319 (Version 1)
Quarter: 2019Q3

REPORT INFORMATION
  Report Type: Spontaneous
  Country: JP (occurrence: JP)
  Receive Date: 20190812
  Receipt Date: 20190812
  Transmission Date: 20191004
  Serious: Yes (Other)
  Sender: FDA-Public Use
  Company Number: JP-MYLANLABS-2019M1075117

PATIENT
  Age: 41 Year
  Sex: Female

DRUGS (1)
  1. ACICLOVIR MYLAN [Suspect]
     Active Substance: ACYCLOVIR
     Indication: HERPES ZOSTER
     Dosage: UNK
     Route: 048

REACTIONS (5)
  - Lacrimation increased [Unknown]
  - Post herpetic neuralgia [Unknown]
  - SUNCT syndrome [Recovered/Resolved]
  - Conjunctival hyperaemia [Unknown]
  - Drug-induced liver injury [Unknown]
